FAERS Safety Report 5193063-X (Version None)
Quarter: 2006Q4

REPORT INFORMATION
  Report Type: 
  Country: None (occurrence: None)
  Receive Date: 20061228
  Receipt Date: 20060327
  Transmission Date: 20070319
  Serious: No
  Sender: FDA-Public Use
  Company Number: US-GLAXOSMITHKLINE-A0599896A

PATIENT
  Sex: Male

DRUGS (11)
  1. AVODART [Suspect]
     Indication: DRUG USE FOR UNKNOWN INDICATION
     Route: 048
     Dates: start: 20060301
  2. ATENOLOL [Concomitant]
  3. NORVASC [Concomitant]
  4. AVALIDE [Concomitant]
  5. FLOMAX [Concomitant]
  6. SELENIUM SULFIDE [Concomitant]
  7. VITAMIN E [Concomitant]
  8. ASCORBIC ACID [Concomitant]
  9. SAW PALMETTO [Concomitant]
  10. VITAMINS [Concomitant]
  11. HERBS [Concomitant]

REACTIONS (2)
  - DRUG INTERACTION [None]
  - DYSURIA [None]
